FAERS Safety Report 6024682-6 (Version None)
Quarter: 2008Q4

REPORT INFORMATION
  Report Type: 
  Country: None (occurrence: None)
  Receive Date: 20081231
  Receipt Date: 20081229
  Transmission Date: 20090506
  Serious: Yes (Death)
  Sender: FDA-Public Use
  Company Number: US-BAYER-200841290NA

PATIENT
  Sex: Male

DRUGS (4)
  1. AVELOX [Suspect]
     Indication: DRUG USE FOR UNKNOWN INDICATION
     Route: 042
  2. SOTALOL [Suspect]
     Indication: DRUG USE FOR UNKNOWN INDICATION
  3. SYNTHROID [Concomitant]
  4. DIGOXIN [Concomitant]

REACTIONS (1)
  - DEATH [None]
